FAERS Safety Report 21151352 (Version 1)
Quarter: 2022Q3

REPORT INFORMATION
  Report Type: Spontaneous
  Country: RO (occurrence: RO)
  Receive Date: 20220730
  Receipt Date: 20220730
  Transmission Date: 20221027
  Serious: Yes (Other)
  Sender: FDA-Public Use
  Company Number: RO-ABBVIE-22K-135-4464384-00

PATIENT
  Age: 53 Year
  Sex: Female

DRUGS (2)
  1. OBINUTUZUMAB [Suspect]
     Active Substance: OBINUTUZUMAB
     Indication: Chronic lymphocytic leukaemia stage 2
     Route: 042
     Dates: start: 20210830
  2. VENETOCLAX [Suspect]
     Active Substance: VENETOCLAX
     Indication: Chronic lymphocytic leukaemia stage 2
     Route: 065
     Dates: start: 20210830

REACTIONS (3)
  - Tumour lysis syndrome [Recovered/Resolved]
  - Neutropenia [Recovering/Resolving]
  - COVID-19 [Unknown]
